FAERS Safety Report 7123319-2 (Version None)
Quarter: 2010Q4

REPORT INFORMATION
  Report Type: 
  Country: None (occurrence: None)
  Receive Date: 20101125
  Receipt Date: 20101118
  Transmission Date: 20110411
  Serious: No
  Sender: FDA-Public Use
  Company Number: US-BIOGENIDEC-2010BI041002

PATIENT
  Sex: Female

DRUGS (2)
  1. TYSABRI [Suspect]
     Indication: MULTIPLE SCLEROSIS
     Route: 042
     Dates: start: 20090226
  2. TYSABRI [Suspect]
     Route: 042

REACTIONS (6)
  - ASTHENIA [None]
  - COGNITIVE DISORDER [None]
  - COORDINATION ABNORMAL [None]
  - FATIGUE [None]
  - FRUSTRATION [None]
  - NASOPHARYNGITIS [None]
